FAERS Safety Report 17940590 (Version 4)
Quarter: 2020Q4

REPORT INFORMATION
  Report Type: Report from Study
  Country: US (occurrence: US)
  Receive Date: 20200624
  Receipt Date: 20201231
  Transmission Date: 20210113
  Serious: No
  Sender: FDA-Public Use
  Company Number: NVSC2020US177276

PATIENT
  Sex: Female

DRUGS (1)
  1. COSENTYX [Suspect]
     Active Substance: SECUKINUMAB
     Indication: PSORIASIS
     Dosage: UNK, QW
     Route: 058
     Dates: start: 202006

REACTIONS (5)
  - Abdominal pain upper [Unknown]
  - Psoriasis [Unknown]
  - Diarrhoea [Unknown]
  - Headache [Unknown]
  - Injection site mass [Recovered/Resolved]
